FAERS Safety Report 4633791-5 (Version None)
Quarter: 2005Q2

REPORT INFORMATION
  Report Type: 
  Country: None (occurrence: None)
  Receive Date: 20050412
  Receipt Date: 20050412
  Transmission Date: 20051028
  Serious: Yes (Hospitalization)
  Sender: FDA-Public Use
  Company Number: None

PATIENT
  Sex: Male

DRUGS (9)
  1. FLUDARABINE PHOSPHATE [Suspect]
     Indication: BONE MARROW CONDITIONING REGIMEN
     Dosage: 60 MG QD IV
     Route: 042
     Dates: start: 20040908, end: 20040912
  2. FLUDARABINE PHOSPHATE [Suspect]
     Indication: STEM CELL TRANSPLANT
     Dosage: 60 MG QD IV
     Route: 042
     Dates: start: 20040908, end: 20040912
  3. MELPHALAN [Suspect]
     Dosage: 275MG IV
     Route: 042
     Dates: start: 20040913
  4. CAMPATH [Suspect]
     Dosage: 20 MG QD IV
     Route: 042
     Dates: start: 20040908, end: 20040912
  5. SYNTHROID [Concomitant]
  6. POTASSIUM CHLORIDE [Concomitant]
  7. AMBISON [Concomitant]
  8. CIDOFAVIR [Concomitant]
  9. AVELOX [Concomitant]

REACTIONS (6)
  - EFFUSION [None]
  - HEPATIC HAEMATOMA [None]
  - INFLUENZA [None]
  - LIVER ABSCESS [None]
  - PERICARDIAL EFFUSION [None]
  - PNEUMONIA FUNGAL [None]
